FAERS Safety Report 6091224-9 (Version None)
Quarter: 2009Q1

REPORT INFORMATION
  Report Type: 
  Country: None (occurrence: None)
  Receive Date: 20090225
  Receipt Date: 20090223
  Transmission Date: 20090719
  Serious: Yes (Other)
  Sender: FDA-Public Use
  Company Number: CA-BRISTOL-MYERS SQUIBB COMPANY-14508402

PATIENT
  Age: 54 Year
  Sex: Male

DRUGS (3)
  1. CISPLATIN [Suspect]
     Indication: NON-SMALL CELL LUNG CANCER
  2. VINBLASTINE [Suspect]
     Indication: NON-SMALL CELL LUNG CANCER
  3. RADIATION THERAPY [Suspect]
     Indication: NON-SMALL CELL LUNG CANCER
     Dosage: 1 DOSAGEFORM=60 GY(7 FR)MAX-CORD DOSE-4500 CGY, WHOLE BRAIN (30 GY IN 10 FR)TOTAL OF 45 GY IN 10 FR

REACTIONS (4)
  - HAEMOPTYSIS [None]
  - MYOCARDIAL INFARCTION [None]
  - RADIATION FIBROSIS [None]
  - SUPERIOR VENA CAVAL OCCLUSION [None]
